FAERS Safety Report 5572807-9 (Version None)
Quarter: 2007Q4

REPORT INFORMATION
  Report Type: 
  Country: None (occurrence: None)
  Receive Date: 20071223
  Receipt Date: 20071214
  Transmission Date: 20080405
  Serious: No
  Sender: FDA-Public Use
  Company Number: PHBS2007JP20825

PATIENT
  Age: 56 Year
  Sex: Male

DRUGS (3)
  1. VOLTAREN [Suspect]
     Indication: SPINAL OSTEOARTHRITIS
     Dosage: 75 MG/DAY
     Route: 048
     Dates: start: 20020901
  2. ATELEC [Concomitant]
     Dosage: 5 MG/DAY
     Route: 048
     Dates: start: 20020101
  3. LENDORMIN [Concomitant]
     Dosage: 0.25 MG/DAY
     Route: 048
     Dates: start: 20020101

REACTIONS (1)
  - SKIN HAEMORRHAGE [None]
